FAERS Safety Report 8821436 (Version 1)
Quarter: 2012Q4

REPORT INFORMATION
  Report Type: 
  Country: CO (occurrence: CO)
  Receive Date: 20121002
  Receipt Date: 20121002
  Transmission Date: 20130627
  Serious: Yes (Other)
  Sender: FDA-Public Use
  Company Number: CO-ROCHE-1139683

PATIENT
  Sex: Male

DRUGS (1)
  1. OMALIZUMAB [Suspect]
     Indication: PRODUCT USED FOR UNKNOWN INDICATION
     Route: 030
     Dates: start: 20111003, end: 20120727

REACTIONS (2)
  - Varicella [Recovered/Resolved]
  - Incorrect route of drug administration [Unknown]
